FAERS Safety Report 24169719 (Version 1)
Quarter: 2024Q3

REPORT INFORMATION
  Report Type: Report from Study
  Country: PT (occurrence: PT)
  Receive Date: 20240803
  Receipt Date: 20240803
  Transmission Date: 20241017
  Serious: Yes (Death, Hospitalization)
  Sender: ABBVIE
  Company Number: PT-ABBVIE-5865436

PATIENT
  Age: 72 Year
  Sex: Female

DRUGS (8)
  1. CARBIDOPA\LEVODOPA [Suspect]
     Active Substance: CARBIDOPA\LEVODOPA
     Indication: Parkinson^s disease
     Dosage: 20 MG + 5 MG, FREQUENCY TEXT: MORN:6CC;MAINT:2.5CC/H;EXTR:1CC
     Route: 050
     Dates: start: 20201029
  2. CARBIDOPA\LEVODOPA [Suspect]
     Active Substance: CARBIDOPA\LEVODOPA
     Dosage: 20 MG + 5 MG, FREQUENCY TEXT: MORN:20CC;MAINT:4.5CC/H;EXTR:3.5CC
     Route: 050
     Dates: start: 2024, end: 20240619
  3. CARBIDOPA\LEVODOPA [Suspect]
     Active Substance: CARBIDOPA\LEVODOPA
     Dosage: 20 MG + 5 MG (GASTRIC), - FREQUENCY TEXT: MORN:20CC;MAINT:4.5CC/H;EXTR:3.5CC
     Route: 050
     Dates: start: 20240619, end: 20240731
  4. RIVASTIGMINE [Concomitant]
     Active Substance: RIVASTIGMINE
     Indication: Product used for unknown indication
     Route: 062
     Dates: start: 202305
  5. RIVOTRIL [Concomitant]
     Active Substance: CLONAZEPAM
     Indication: Product used for unknown indication
     Dosage: 0.5 MILLIGRAM
  6. CLOZAPINE [Concomitant]
     Active Substance: CLOZAPINE
     Indication: Product used for unknown indication
     Dosage: 25 MILLIGRAM
  7. ESCITALOPRAM [Concomitant]
     Active Substance: ESCITALOPRAM OXALATE
     Indication: Product used for unknown indication
     Dosage: 10 MILLIGRAM
  8. DOMPERIDONE [Concomitant]
     Active Substance: DOMPERIDONE
     Indication: Product used for unknown indication
     Dosage: TIME INTERVAL: 0.33333333 DAYS: 30 MILLIGRAM

REACTIONS (3)
  - Death [Fatal]
  - Fatigue [Not Recovered/Not Resolved]
  - Unresponsive to stimuli [Not Recovered/Not Resolved]

NARRATIVE: CASE EVENT DATE: 20240731
